FAERS Safety Report 6741245-5 (Version None)
Quarter: 2010Q2

REPORT INFORMATION
  Report Type: 
  Country: None (occurrence: None)
  Receive Date: 20100526
  Receipt Date: 20100518
  Transmission Date: 20101027
  Serious: Yes (Other)
  Sender: FDA-Public Use
  Company Number: FI-JNJFOC-20100507717

PATIENT
  Age: 78 Year
  Sex: Female

DRUGS (5)
  1. ABCIXIMAB [Suspect]
     Indication: PERCUTANEOUS CORONARY INTERVENTION
  2. WARFARIN SODIUM [Concomitant]
     Indication: ATRIAL FIBRILLATION
  3. ASPIRIN [Concomitant]
     Indication: PERCUTANEOUS CORONARY INTERVENTION
  4. CLOPIDOGREL [Concomitant]
     Indication: PERCUTANEOUS CORONARY INTERVENTION
  5. ENOXAPARIN SODIUM [Concomitant]
     Indication: PERCUTANEOUS CORONARY INTERVENTION

REACTIONS (1)
  - VASCULAR PSEUDOANEURYSM [None]
